FAERS Safety Report 7287404-7 (Version None)
Quarter: 2011Q1

REPORT INFORMATION
  Report Type: 
  Country: None (occurrence: None)
  Receive Date: 20110211
  Receipt Date: 20110128
  Transmission Date: 20110831
  Serious: Yes (Other)
  Sender: FDA-Public Use
  Company Number: ES-RANBAXY-2011RR-41341

PATIENT
  Age: 39 Year
  Sex: Female

DRUGS (1)
  1. AMOXICILLIN AND CLAVULANATE POTASSIUM [Suspect]

REACTIONS (11)
  - DYSPNOEA [None]
  - URTICARIA [None]
  - ABDOMINAL PAIN [None]
  - ERYTHEMA [None]
  - DIZZINESS [None]
  - VOMITING [None]
  - DIARRHOEA [None]
  - ANAPHYLACTIC REACTION [None]
  - PRURITUS GENERALISED [None]
  - WHEEZING [None]
  - METRORRHAGIA [None]
